FAERS Safety Report 6818594-5 (Version None)
Quarter: 2010Q3

REPORT INFORMATION
  Report Type: 
  Country: None (occurrence: None)
  Receive Date: 20100706
  Receipt Date: 20090210
  Transmission Date: 20110219
  Serious: No
  Sender: FDA-Public Use
  Company Number: US-PFIZER INC-2009168428

PATIENT
  Sex: Female
  Weight: 13.6 kg

DRUGS (4)
  1. AZITHROMYCIN [Suspect]
     Indication: EAR INFECTION
     Dosage: 100 MG, UNK
     Dates: start: 20090209, end: 20090210
  2. DRUG, UNSPECIFIED [Concomitant]
     Dosage: UNK
  3. POLLEN [Concomitant]
     Dosage: UNK
  4. ALLERGY MEDICATION [Concomitant]
     Dosage: UNK

REACTIONS (2)
  - RASH [None]
  - URTICARIA [None]
